FAERS Safety Report 8528882 (Version 2)
Quarter: 2013Q2

REPORT INFORMATION
  Report Type: Spontaneous
  Country: AU (occurrence: AU)
  Receive Date: 20120425
  Receipt Date: 20130606
  Transmission Date: 20140414
  Serious: Yes (Hospitalization, Other)
  Sender: FDA-Public Use
  Company Number: AU-BAYER-2012-037129

PATIENT
  Age: 37 Year
  Sex: Female
  Weight: 88 kg

DRUGS (2)
  1. MIRENA [Suspect]
     Indication: CONTRACEPTION
     Dosage: 20 MCG/24HR, CONT
     Route: 015
     Dates: start: 20070105, end: 20130409
  2. MIRENA [Suspect]
     Indication: MENORRHAGIA
     Dosage: 20 MCG/24HR, CONT
     Route: 015
     Dates: start: 20120416

REACTIONS (4)
  - Uterine perforation [Recovered/Resolved]
  - Cervical polyp [None]
  - Coital bleeding [None]
  - Device misuse [None]
